FAERS Safety Report 21072856 (Version 1)
Quarter: 2022Q3

REPORT INFORMATION
  Report Type: Spontaneous
  Country: GB (occurrence: GR)
  Receive Date: 20220712
  Receipt Date: 20220712
  Transmission Date: 20221027
  Serious: Yes (Death, Other)
  Sender: FDA-Public Use
  Company Number: None

PATIENT

DRUGS (2)
  1. LATUDA [Suspect]
     Active Substance: LURASIDONE HYDROCHLORIDE
     Indication: Depression
     Dosage: 74 MG
     Route: 048
     Dates: start: 20220614, end: 20220615
  2. LATUDA [Suspect]
     Active Substance: LURASIDONE HYDROCHLORIDE
     Indication: Bipolar disorder

REACTIONS (7)
  - Death [Fatal]
  - Cardiac arrest [Fatal]
  - Loss of consciousness [Fatal]
  - Speech disorder [Fatal]
  - Hyperhidrosis [Fatal]
  - Dyspnoea [Fatal]
  - Off label use [Fatal]

NARRATIVE: CASE EVENT DATE: 20220615
